FAERS Safety Report 10020639 (Version 3)
Quarter: 2014Q2

REPORT INFORMATION
  Report Type: Report from Study
  Country: PE (occurrence: PE)
  Receive Date: 20140319
  Receipt Date: 20140411
  Transmission Date: 20141212
  Serious: Yes (Death, Hospitalization, Other)
  Sender: FDA-Public Use
  Company Number: PE-BRISTOL-MYERS SQUIBB COMPANY-20397378

PATIENT
  Age: 76 Year
  Sex: 0

DRUGS (2)
  1. CETUXIMAB [Suspect]
     Indication: SQUAMOUS CELL CARCINOMA OF HEAD AND NECK
     Dosage: IL DOSE: 400MG/M2;250MG/M2 FRM 2ND WK OF 7WKS,TTL DOSE: 76.7%,23APR07,MST REENT INF OF  CETUXIMAB
     Dates: start: 20070319
  2. CISPLATIN [Suspect]
     Indication: SQUAMOUS CELL CARCINOMA OF HEAD AND NECK
     Dosage: TOTAL DOSE: 71.4%?ON 30 APR 2007, THE SUBJECT RECEIVED THE MOST RECENT INFUSION OF CISPLATIN
     Dates: start: 20070326

REACTIONS (1)
  - Pneumonia [Fatal]
